FAERS Safety Report 10300509 (Version 2)
Quarter: 2015Q1

REPORT INFORMATION
  Report Type: Report from Study
  Country: FR (occurrence: FR)
  Receive Date: 20140713
  Receipt Date: 20150129
  Transmission Date: 20150720
  Serious: Yes (Hospitalization)
  Sender: FDA-Public Use
  Company Number: FR-ROCHE-1431616

PATIENT
  Sex: Female

DRUGS (26)
  1. TOCILIZUMAB [Suspect]
     Active Substance: TOCILIZUMAB
     Dosage: LAST DOSE PRIOR TO 13/MAR/2013
     Route: 042
     Dates: start: 20110725
  2. TOCILIZUMAB [Suspect]
     Active Substance: TOCILIZUMAB
     Dosage: LAST DOSE PRIOR TO 13/MAR/2013
     Route: 042
     Dates: start: 20111104
  3. TOCILIZUMAB [Suspect]
     Active Substance: TOCILIZUMAB
     Dosage: LAST DOSE PRIOR TO 13/MAR/2013
     Route: 042
     Dates: start: 20120316
  4. METHOTREXATE [Concomitant]
     Active Substance: METHOTREXATE
  5. TOCILIZUMAB [Suspect]
     Active Substance: TOCILIZUMAB
     Dosage: LAST DOSE PRIOR TO 13/MAR/2013
     Route: 042
     Dates: start: 20111207
  6. TOCILIZUMAB [Suspect]
     Active Substance: TOCILIZUMAB
     Dosage: LAST DOSE PRIOR TO 13/MAR/2013
     Route: 042
     Dates: start: 20120110
  7. TOCILIZUMAB [Suspect]
     Active Substance: TOCILIZUMAB
     Dosage: LAST DOSE PRIOR TO 13/MAR/2013
     Route: 042
     Dates: start: 20120208
  8. TOCILIZUMAB [Suspect]
     Active Substance: TOCILIZUMAB
     Dosage: LAST DOSE PRIOR TO 13/MAR/2013
     Route: 042
     Dates: start: 20121008
  9. TOCILIZUMAB [Suspect]
     Active Substance: TOCILIZUMAB
     Dosage: LAST DOSE PRIOR TO 13/MAR/2013
     Route: 042
     Dates: start: 20121205
  10. TOCILIZUMAB [Suspect]
     Active Substance: TOCILIZUMAB
     Dosage: LAST DOSE PRIOR TO 13/MAR/2013
     Route: 042
     Dates: start: 20130212
  11. TOCILIZUMAB [Suspect]
     Active Substance: TOCILIZUMAB
     Indication: RHEUMATOID ARTHRITIS
     Route: 042
     Dates: start: 20110302, end: 20130313
  12. TOCILIZUMAB [Suspect]
     Active Substance: TOCILIZUMAB
     Dosage: LAST DOSE PRIOR TO 13/MAR/2013
     Route: 042
     Dates: start: 20120521
  13. TOCILIZUMAB [Suspect]
     Active Substance: TOCILIZUMAB
     Dosage: LAST DOSE PRIOR TO 13/MAR/2013
     Route: 042
     Dates: start: 20120726
  14. TOCILIZUMAB [Suspect]
     Active Substance: TOCILIZUMAB
     Dosage: LAST DOSE PRIOR TO 13/MAR/2013
     Route: 042
     Dates: start: 20130313
  15. TOCILIZUMAB [Suspect]
     Active Substance: TOCILIZUMAB
     Dosage: LAST DOSE PRIOR TO 13/MAR/2013
     Route: 042
     Dates: start: 20120420
  16. TOCILIZUMAB [Suspect]
     Active Substance: TOCILIZUMAB
     Dosage: LAST DOSE PRIOR TO 13/MAR/2013
     Route: 042
     Dates: start: 20130111
  17. INEXIUM [Concomitant]
     Active Substance: ESOMEPRAZOLE
  18. TOCILIZUMAB [Suspect]
     Active Substance: TOCILIZUMAB
     Dosage: LAST DOSE PRIOR TO 13/MAR/2013
     Route: 042
     Dates: start: 20111003
  19. TOCILIZUMAB [Suspect]
     Active Substance: TOCILIZUMAB
     Dosage: LAST DOSE PRIOR TO 13/MAR/2013
     Route: 042
     Dates: start: 20121107
  20. TOCILIZUMAB [Suspect]
     Active Substance: TOCILIZUMAB
     Dosage: LAST DOSE PRIOR TO 13/MAR/2013
     Route: 042
     Dates: start: 20110620
  21. SPECIAFOLDINE [Concomitant]
     Active Substance: FOLIC ACID
  22. TOCILIZUMAB [Suspect]
     Active Substance: TOCILIZUMAB
     Dosage: LAST DOSE PRIOR TO 13/MAR/2013
     Route: 042
     Dates: start: 20110516
  23. TOCILIZUMAB [Suspect]
     Active Substance: TOCILIZUMAB
     Dosage: LAST DOSE PRIOR TO 13/MAR/2013
     Route: 042
     Dates: start: 20110906
  24. TOCILIZUMAB [Suspect]
     Active Substance: TOCILIZUMAB
     Dosage: LAST DOSE PRIOR TO 13/MAR/2013
     Route: 042
     Dates: start: 20120628
  25. TOCILIZUMAB [Suspect]
     Active Substance: TOCILIZUMAB
     Dosage: LAST DOSE PRIOR TO 13/MAR/2013
     Route: 042
     Dates: start: 20120828
  26. TOCILIZUMAB [Suspect]
     Active Substance: TOCILIZUMAB
     Dosage: LAST DOSE PRIOR TO 13/MAR/2013
     Route: 042
     Dates: start: 20120521

REACTIONS (2)
  - Cholelithiasis [Recovered/Resolved]
  - Pharyngitis [Recovered/Resolved]

NARRATIVE: CASE EVENT DATE: 201104
